FAERS Safety Report 5441749-1 (Version None)
Quarter: 2007Q3

REPORT INFORMATION
  Report Type: 
  Country: None (occurrence: None)
  Receive Date: 20070829
  Receipt Date: 20070829
  Transmission Date: 20080115
  Serious: Yes (Life-Threatening)
  Sender: FDA-Public Use
  Company Number: None

PATIENT
  Sex: Male
  Weight: 113.3993 kg

DRUGS (2)
  1. METHYLIN [Suspect]
     Indication: NARCOLEPSY
     Dosage: 2 -40MG- QID PO
     Route: 048
     Dates: start: 20070222, end: 20070331
  2. METHYLIN [Suspect]
     Indication: NARCOLEPSY
     Dosage: 2 -40MG- QID PO
     Route: 048
     Dates: start: 20070427, end: 20070531

REACTIONS (4)
  - DRUG INEFFECTIVE [None]
  - IMPAIRED DRIVING ABILITY [None]
  - SOMNOLENCE [None]
  - THERAPEUTIC RESPONSE UNEXPECTED WITH DRUG SUBSTITUTION [None]
